FAERS Safety Report 17412582 (Version 2)
Quarter: 2020Q1

REPORT INFORMATION
  Report Type: Spontaneous
  Country: JP (occurrence: JP)
  Receive Date: 20200213
  Receipt Date: 20200323
  Transmission Date: 20200409
  Serious: Yes (Other)
  Sender: FDA-Public Use
  Company Number: JP-GLAXOSMITHKLINE-JP2020JPN021849

PATIENT
  Age: 7 Decade
  Sex: Male

DRUGS (2)
  1. MEPOLIZUMAB [Suspect]
     Active Substance: MEPOLIZUMAB
     Dosage: 100 MG, ONCE IN EVERY 4 WEEKS
     Route: 058
     Dates: start: 202001, end: 202001
  2. MEPOLIZUMAB [Suspect]
     Active Substance: MEPOLIZUMAB
     Indication: ASTHMA
     Dosage: 100 MG, ONCE IN EVERY 4 WEEKS
     Route: 058
     Dates: start: 20191218, end: 20191218

REACTIONS (1)
  - Metastatic neoplasm [Unknown]
